FAERS Safety Report 9511405 (Version 1)
Quarter: 2013Q1

REPORT INFORMATION
  Report Type: Spontaneous
  Country: US (occurrence: None)
  Receive Date: 20130305
  Receipt Date: 20130305
  Transmission Date: 20140127
  Serious: Yes (Other)
  Sender: FDA-Public Use
  Company Number: 163-21880-12103324

PATIENT
  Age: 71 Year
  Sex: Female
  Weight: 74.84 kg

DRUGS (7)
  1. REVLIMID [Suspect]
     Indication: MYELODYSPLASTIC SYNDROME
     Dosage: 10 MG, 1 IN 1 D, PO
     Route: 048
     Dates: start: 20120829
  2. LEVETIRACETAM (LEVETIRACETAM) [Concomitant]
  3. PROVENTIL (SALBUTAMOL) [Concomitant]
  4. VITAMINS [Concomitant]
  5. VITAMIN B-12 (VITAMIN B-12) [Concomitant]
  6. BABY ASPIRIN (ACETYLSALICYLIC ACID) [Concomitant]
  7. TRANSFUSION (BLOOD AND RELATED PRODUCTS) [Concomitant]

REACTIONS (1)
  - Full blood count decreased [None]
